FAERS Safety Report 10488398 (Version 1)
Quarter: 2014Q4

REPORT INFORMATION
  Report Type: Spontaneous
  Country: US (occurrence: US)
  Receive Date: 20141002
  Receipt Date: 20141002
  Transmission Date: 20150528
  Serious: No
  Sender: FDA-Public Use
  Company Number: US-009507513-1409USA011951

PATIENT
  Sex: Female
  Weight: 63.95 kg

DRUGS (3)
  1. SYNTHROID [Concomitant]
     Active Substance: LEVOTHYROXINE SODIUM
     Dosage: UNK, ONCE DAILY
  2. SINGULAIR [Suspect]
     Active Substance: MONTELUKAST SODIUM
     Dosage: UNK
     Route: 048
     Dates: start: 2013
  3. CYTOMEL [Concomitant]
     Active Substance: LIOTHYRONINE SODIUM
     Dosage: UNK, AS NEEDED

REACTIONS (2)
  - Hypoaesthesia [Unknown]
  - Hypoaesthesia [Recovered/Resolved]
